FAERS Safety Report 8243289-3 (Version None)
Quarter: 2012Q1

REPORT INFORMATION
  Report Type: 
  Country: None (occurrence: None)
  Receive Date: 20120329
  Receipt Date: 20120314
  Transmission Date: 20120608
  Serious: Yes (Other)
  Sender: FDA-Public Use
  Company Number: US-ROCHE-1035301

PATIENT
  Sex: Female
  Weight: 70.37 kg

DRUGS (2)
  1. XELODA [Suspect]
     Indication: BREAST CANCER METASTATIC
     Route: 048
     Dates: start: 20100815
  2. HERCEPTIN [Concomitant]

REACTIONS (5)
  - PALMAR-PLANTAR ERYTHRODYSAESTHESIA SYNDROME [None]
  - SKIN CANCER [None]
  - SKIN FISSURES [None]
  - DEPRESSION [None]
  - DRY SKIN [None]
